FAERS Safety Report 7772787-1 (Version None)
Quarter: 2011Q3

REPORT INFORMATION
  Report Type: 
  Country: None (occurrence: None)
  Receive Date: 20110922
  Receipt Date: 20100521
  Transmission Date: 20111222
  Serious: No
  Sender: FDA-Public Use
  Company Number: US-ASTRAZENECA-2010SE37209

PATIENT
  Age: 17227 Day
  Sex: Female

DRUGS (4)
  1. SEROQUEL [Suspect]
     Indication: NERVOUSNESS
     Dosage: 25-200 MG
     Route: 048
     Dates: start: 20041210
  2. ALPRAZOLAM [Concomitant]
     Indication: ANXIETY
     Dosage: PRN
     Route: 048
     Dates: start: 20050127
  3. CLONIDINE [Concomitant]
     Dates: start: 20050126
  4. ATENOLOL [Concomitant]
     Route: 048
     Dates: start: 20050211

REACTIONS (4)
  - HEPATIC STEATOSIS [None]
  - TYPE 2 DIABETES MELLITUS [None]
  - HYPERTENSION [None]
  - BLOOD CHOLESTEROL INCREASED [None]
